FAERS Safety Report 16702304 (Version 1)
Quarter: 2019Q3

REPORT INFORMATION
  Report Type: Spontaneous
  Country: US (occurrence: US)
  Receive Date: 20190627
  Receipt Date: 20190627
  Transmission Date: 20191004
  Serious: No
  Sender: FDA-Public Use
  Company Number: None

PATIENT
  Age: 61 Year
  Sex: Female

DRUGS (5)
  1. VITAMIN B12 [Concomitant]
     Active Substance: CYANOCOBALAMIN
  2. URSODIOL. [Concomitant]
     Active Substance: URSODIOL
  3. VITAMIN D CAPSULES [Concomitant]
  4. COD LIVER OIL [Concomitant]
     Active Substance: COD LIVER OIL
  5. OCALIVA [Suspect]
     Active Substance: OBETICHOLIC ACID
     Route: 048
     Dates: start: 20180516

REACTIONS (1)
  - Pruritus [None]
